FAERS Safety Report 9097785 (Version 1)
Quarter: 2013Q1

REPORT INFORMATION
  Report Type: Spontaneous
  Country: US (occurrence: US)
  Receive Date: 20130212
  Receipt Date: 20130212
  Transmission Date: 20140127
  Serious: Yes (Hospitalization)
  Sender: FDA-Public Use
  Company Number: US-BAYER-2013-017787

PATIENT
  Age: 42 Year
  Sex: Female
  Weight: 119.73 kg

DRUGS (3)
  1. OCELLA [Suspect]
  2. ACETAMINOPHEN [Concomitant]
  3. DUONEB [Concomitant]

REACTIONS (2)
  - Pulmonary embolism [None]
  - Deep vein thrombosis [None]
